FAERS Safety Report 7864063-3 (Version None)
Quarter: 2011Q4

REPORT INFORMATION
  Report Type: 
  Country: None (occurrence: None)
  Receive Date: 20111028
  Receipt Date: 20111019
  Transmission Date: 20120403
  Serious: Yes (Hospitalization, Other)
  Sender: FDA-Public Use
  Company Number: US-JNJFOC-20111009606

PATIENT
  Sex: Female

DRUGS (21)
  1. WELLBUTRIN [Concomitant]
     Indication: DEPRESSION
     Route: 048
  2. PLAQUENIL [Concomitant]
     Indication: SYSTEMIC LUPUS ERYTHEMATOSUS
     Route: 048
  3. ZOFRAN [Concomitant]
     Indication: NAUSEA
     Dosage: 4-8 MG SOLUTION/ EVERY SIX HOURS AS NEEDED
     Route: 050
  4. FENTANYL-100 [Suspect]
     Indication: BACK PAIN
     Route: 062
  5. NEURONTIN [Concomitant]
     Indication: DIABETIC NEUROPATHY
     Dosage: 1200 MG (600X2) EVERY AM, 600 MG EVERY AFTERNOON,1200 MG (600X2) EVERY PM
     Route: 048
  6. FLEXERIL [Concomitant]
     Indication: MUSCLE RELAXANT THERAPY
     Dosage: ONCE EVERY 6 HOURS
     Route: 048
  7. REGULAR INSULIN [Concomitant]
     Indication: TYPE 2 DIABETES MELLITUS
     Route: 058
  8. RHINOCORT [Concomitant]
     Indication: MULTIPLE ALLERGIES
     Route: 045
  9. PERCOCET [Concomitant]
     Indication: BREAKTHROUGH PAIN
     Dosage: 5/325 MG TABLET AS NEEDED 4 TIMES/DAY
     Route: 048
  10. PHENERGAN HCL [Concomitant]
     Indication: NAUSEA
     Dosage: EVERY 4-6 HOURS
     Route: 050
  11. THYROID TAB [Concomitant]
     Indication: THYROID FUNCTION TEST ABNORMAL
     Route: 048
  12. REQUIP [Concomitant]
     Indication: RESTLESS LEGS SYNDROME
     Route: 048
  13. LANTUS [Concomitant]
     Indication: TYPE 2 DIABETES MELLITUS
     Dosage: 45 UNITS EVERY AM  45 UNITS EVERY PM
     Route: 058
  14. PERCOCET [Concomitant]
     Dosage: 10/325 MG TABLET AS NEEDED 4 TIMES/DAY.
     Route: 048
  15. ASPIRIN [Concomitant]
     Indication: CARDIAC DISORDER
     Route: 048
  16. FENTANYL-100 [Suspect]
     Route: 062
     Dates: start: 20090101
  17. SINGULAIR [Concomitant]
     Indication: BRONCHITIS
     Route: 048
  18. ATENOLOL [Concomitant]
     Indication: HYPERTENSION
     Route: 048
  19. STEROID INJECTION NOS [Concomitant]
     Indication: PRODUCT USED FOR UNKNOWN INDICATION
     Dosage: 1200 MG (600X2) EVERY AM  600 MG EVERY AFTERNOON  1200 MG (600X2) EVERY PM
     Route: 037
     Dates: start: 20110401
  20. LISINOPRIL [Concomitant]
     Indication: RENAL IMPAIRMENT
     Route: 048
  21. ATENOLOL [Concomitant]
     Indication: ANGINA PECTORIS
     Route: 048

REACTIONS (12)
  - ABDOMINAL DISCOMFORT [None]
  - APPLICATION SITE IRRITATION [None]
  - INCORRECT DRUG ADMINISTRATION DURATION [None]
  - PNEUMONIA [None]
  - WRONG TECHNIQUE IN DRUG USAGE PROCESS [None]
  - LOSS OF CONSCIOUSNESS [None]
  - VOMITING [None]
  - DRUG INEFFECTIVE [None]
  - THERAPEUTIC RESPONSE DECREASED [None]
  - PRODUCT QUALITY ISSUE [None]
  - ABNORMAL BEHAVIOUR [None]
  - APPLICATION SITE PAIN [None]
